FAERS Safety Report 12075334 (Version 1)
Quarter: 2016Q1

REPORT INFORMATION
  Report Type: Spontaneous
  Country: BR (occurrence: BR)
  Receive Date: 20160212
  Receipt Date: 20160212
  Transmission Date: 20160526
  Serious: Yes (Life-Threatening, Other)
  Sender: FDA-Public Use
  Company Number: PHHY2016BR012220

PATIENT
  Age: 11 Year
  Sex: Male
  Weight: 65 kg

DRUGS (4)
  1. CARBAMAZEPINE. [Suspect]
     Active Substance: CARBAMAZEPINE
     Indication: HEADACHE
     Dosage: 1 DF, QD
     Route: 048
     Dates: start: 201507
  2. TOFRANIL PAMOATO [Suspect]
     Active Substance: IMIPRAMINE PAMOATE
     Indication: DEPRESSION
     Dosage: 1 DF, BID (ONE CAPSULE IN THE MORNING AND ONE CAPSULE AT NIGHT)
     Route: 048
     Dates: start: 201307, end: 20160127
  3. SERTRALINE [Concomitant]
     Active Substance: SERTRALINE HYDROCHLORIDE
     Indication: DEPRESSION
     Dosage: 2 DF, QD (IN THE MORNING)
     Route: 048
     Dates: start: 201507
  4. CARBAMAZEPINE. [Suspect]
     Active Substance: CARBAMAZEPINE
     Indication: IRRITABILITY

REACTIONS (12)
  - Agitation [Not Recovered/Not Resolved]
  - Injury [Recovered/Resolved]
  - Screaming [Unknown]
  - Road traffic accident [Recovered/Resolved]
  - Product use issue [Unknown]
  - Feeling abnormal [Unknown]
  - Dyspnoea [Not Recovered/Not Resolved]
  - Drug ineffective [Unknown]
  - Obsessive-compulsive disorder [Not Recovered/Not Resolved]
  - Depression [Not Recovered/Not Resolved]
  - Energy increased [Unknown]
  - Aggression [Unknown]

NARRATIVE: CASE EVENT DATE: 201507
